FAERS Safety Report 4275526-4 (Version None)
Quarter: 2004Q1

REPORT INFORMATION
  Report Type: 
  Country: None (occurrence: None)
  Receive Date: 20040121
  Receipt Date: 20040109
  Transmission Date: 20041129
  Serious: Yes (Death)
  Sender: FDA-Public Use
  Company Number: IE-GLAXOSMITHKLINE-B0319394A

PATIENT
  Sex: Male

DRUGS (1)
  1. SEROXAT [Suspect]
     Indication: DEPRESSION
     Dates: start: 20031201

REACTIONS (1)
  - COMPLETED SUICIDE [None]
